FAERS Safety Report 4935556-3 (Version None)
Quarter: 2006Q1

REPORT INFORMATION
  Report Type: 
  Country: None (occurrence: None)
  Receive Date: 20060307
  Receipt Date: 20050902
  Transmission Date: 20060701
  Serious: No
  Sender: FDA-Public Use
  Company Number: US-GLAXOSMITHKLINE-A0572869A

PATIENT
  Age: 68 Year
  Sex: Female

DRUGS (3)
  1. REQUIP [Suspect]
     Indication: PERIODIC LIMB MOVEMENT DISORDER
     Dosage: .25MG VARIABLE DOSE
     Route: 048
     Dates: start: 20041101, end: 20050601
  2. LEXAPRO [Concomitant]
  3. MAXZIDE [Concomitant]

REACTIONS (3)
  - DRUG INEFFECTIVE [None]
  - DYSKINESIA [None]
  - PAIN IN EXTREMITY [None]
